FAERS Safety Report 5972892-6 (Version None)
Quarter: 2008Q4

REPORT INFORMATION
  Report Type: 
  Country: None (occurrence: None)
  Receive Date: 20081201
  Receipt Date: 20081119
  Transmission Date: 20090506
  Serious: Yes (Other)
  Sender: FDA-Public Use
  Company Number: PHHY2008DE28899

PATIENT
  Sex: Male

DRUGS (1)
  1. LEPONEX / LX [Suspect]
     Dosage: 200 MG / DAY
     Route: 048
     Dates: start: 20080602, end: 20080616

REACTIONS (5)
  - DELIRIUM [None]
  - LEFT VENTRICULAR DYSFUNCTION [None]
  - PYREXIA [None]
  - TACHYCARDIA [None]
  - TROPONIN T INCREASED [None]
